FAERS Safety Report 12693183 (Version 1)
Quarter: 2016Q3

REPORT INFORMATION
  Report Type: Spontaneous
  Country: US (occurrence: None)
  Receive Date: 20160826
  Receipt Date: 20160826
  Transmission Date: 20161109
  Serious: Yes (Other)
  Sender: FDA-Public Use
  Company Number: None

PATIENT
  Age: 76 Year
  Sex: Female
  Weight: 56.7 kg

DRUGS (22)
  1. NEXIUM [Concomitant]
     Active Substance: ESOMEPRAZOLE MAGNESIUM
  2. PROLIA PFS [Concomitant]
  3. DICLOFENAC SOD DR [Concomitant]
  4. CEPHALEXIN. [Concomitant]
     Active Substance: CEPHALEXIN
  5. DORZOLAMIDE-TIMLOL [Concomitant]
  6. STOOL SOFTENER [Concomitant]
     Active Substance: DOCUSATE CALCIUM
  7. VITAMIN D [Concomitant]
     Active Substance: CHOLECALCIFEROL
  8. CHLORIAZEPOXIDE-CLIDINIUM/CAP [Concomitant]
  9. AMITIZA [Concomitant]
     Active Substance: LUBIPROSTONE
  10. TRAVATAN [Concomitant]
     Active Substance: TRAVOPROST
  11. ACIDOPHILUS [Concomitant]
     Active Substance: LACTOBACILLUS ACIDOPHILUS
  12. GABAPENTIN. [Concomitant]
     Active Substance: GABAPENTIN
  13. ZOLPIDEM TARTATE [Concomitant]
     Active Substance: ZOLPIDEM TARTRATE
  14. TETANUS INJECTION [Concomitant]
  15. CEFTRIXONE DK [Suspect]
     Active Substance: CEFTRIAXONE
     Indication: PNEUMONIA
     Dosage: CONTINUESLY INTERVENOUS
     Route: 042
     Dates: start: 20160125, end: 20160202
  16. DICYCLOMINE [Concomitant]
     Active Substance: DICYCLOMINE HYDROCHLORIDE
  17. OXYBUTYNIN [Concomitant]
     Active Substance: OXYBUTYNIN
  18. HYDROCODON ACETAMINOPHEN [Concomitant]
  19. FLU INOCULATION [Concomitant]
  20. ATTENOLOL [Concomitant]
  21. CYCLOBENZAPRINE [Concomitant]
     Active Substance: CYCLOBENZAPRINE
  22. ALPHAGAN P [Concomitant]
     Active Substance: BRIMONIDINE TARTRATE

REACTIONS (1)
  - Deafness [None]

NARRATIVE: CASE EVENT DATE: 20160203
